FAERS Safety Report 6872802-3 (Version None)
Quarter: 2010Q3

REPORT INFORMATION
  Report Type: 
  Country: None (occurrence: None)
  Receive Date: 20100723
  Receipt Date: 20081112
  Transmission Date: 20110219
  Serious: No
  Sender: FDA-Public Use
  Company Number: US-PFIZER INC-2008089064

PATIENT
  Sex: Female
  Weight: 56.7 kg

DRUGS (3)
  1. CHANTIX [Suspect]
     Indication: SMOKING CESSATION THERAPY
     Route: 048
     Dates: start: 20081014
  2. PROMETRIUM [Concomitant]
  3. PROGESTERONE W/ESTROGENS/ [Concomitant]

REACTIONS (2)
  - CONSTIPATION [None]
  - DEHYDRATION [None]
